FAERS Safety Report 9189704 (Version 2)
Quarter: 2013Q2

REPORT INFORMATION
  Report Type: Spontaneous
  Country: US (occurrence: None)
  Receive Date: 20130322
  Receipt Date: 20130521
  Transmission Date: 20140414
  Serious: Yes (Hospitalization, Other)
  Sender: FDA-Public Use
  Company Number: JPI-P-030527

PATIENT
  Age: 51 Year
  Sex: Male

DRUGS (6)
  1. XYREM [Suspect]
     Indication: SLEEP DISORDER
     Dosage: 4.5 GM (2.25 GM, 2 IN 1 D), ORAL
     Route: 048
     Dates: start: 20071228
  2. CARBAMAZEPINE [Concomitant]
  3. QUETIAPINE FUMARATE [Concomitant]
  4. MESALAMINE [Concomitant]
  5. DICYCLOMINE HYDROCHLORIDE [Concomitant]
  6. MERCAPTOPURINE [Concomitant]

REACTIONS (10)
  - Abnormal behaviour [None]
  - Anger [None]
  - Loss of consciousness [None]
  - Memory impairment [None]
  - Depressed level of consciousness [None]
  - Hypopnoea [None]
  - Facial bones fracture [None]
  - Colitis ulcerative [None]
  - Insomnia [None]
  - Dysarthria [None]
